FAERS Safety Report 5082919-4 (Version None)
Quarter: 2006Q3

REPORT INFORMATION
  Report Type: 
  Country: None (occurrence: None)
  Receive Date: 20060720
  Receipt Date: 20060403
  Transmission Date: 20061208
  Serious: Yes (Disabling, Other)
  Sender: FDA-Public Use
  Company Number: 2006046344

PATIENT
  Age: 58 Year
  Sex: Female

DRUGS (1)
  1. CELEBREX [Suspect]
     Indication: PAIN
     Dosage: (200 MG, UNKNOWN),
     Dates: start: 20030528

REACTIONS (1)
  - CEREBROVASCULAR ACCIDENT [None]
